FAERS Safety Report 15352227 (Version 1)
Quarter: 2018Q3

REPORT INFORMATION
  Report Type: Spontaneous
  Country: SE (occurrence: SE)
  Receive Date: 20180905
  Receipt Date: 20180905
  Transmission Date: 20181010
  Serious: Yes (Hospitalization)
  Sender: FDA-Public Use
  Company Number: SE-PFIZER INC-2018355536

PATIENT
  Sex: Female
  Weight: 60 kg

DRUGS (6)
  1. HALDOL [Concomitant]
     Active Substance: HALOPERIDOL
  2. STESOLID [Concomitant]
     Active Substance: DIAZEPAM
  3. PHENERGAN [Concomitant]
     Active Substance: PROMETHAZINE HYDROCHLORIDE
     Dosage: UNK
  4. LYRICA [Suspect]
     Active Substance: PREGABALIN
     Indication: ANXIETY
     Dosage: 0 ? 400 MG
     Dates: start: 201509, end: 201512
  5. LYRICA [Suspect]
     Active Substance: PREGABALIN
     Dosage: UNK
     Dates: end: 201712
  6. LYRICA [Suspect]
     Active Substance: PREGABALIN
     Dosage: 400 MG, UNK
     Dates: start: 201512, end: 201609

REACTIONS (2)
  - Withdrawal syndrome [Recovered/Resolved]
  - Gait disturbance [Recovered/Resolved]

NARRATIVE: CASE EVENT DATE: 201509
